FAERS Safety Report 5700718-4 (Version None)
Quarter: 2008Q2

REPORT INFORMATION
  Report Type: 
  Country: None (occurrence: None)
  Receive Date: 20080410
  Receipt Date: 20080121
  Transmission Date: 20081010
  Serious: No
  Sender: FDA-Public Use
  Company Number: A0704365A

PATIENT
  Age: 62 Year
  Sex: Female

DRUGS (5)
  1. TYKERB [Suspect]
     Indication: BREAST CANCER
     Dosage: 1250MG PER DAY
     Route: 048
     Dates: start: 20080114
  2. XELODA [Suspect]
     Dates: start: 20080114
  3. BLOOD PRESSURE MEDICATION [Concomitant]
  4. CALCIUM [Concomitant]
  5. LOVENOX [Concomitant]

REACTIONS (5)
  - DIARRHOEA [None]
  - DYSPNOEA [None]
  - FATIGUE [None]
  - FLUSHING [None]
  - NAUSEA [None]
